FAERS Safety Report 8388074-7 (Version None)
Quarter: 2012Q2

REPORT INFORMATION
  Report Type: 
  Country: None (occurrence: None)
  Receive Date: 20120525
  Receipt Date: 20120523
  Transmission Date: 20120825
  Serious: Yes (Life-Threatening, Hospitalization, Other)
  Sender: FDA-Public Use
  Company Number: JP-B.I. PHARMACEUTICALS,INC./RIDGEFIELD-2012-BP-10747NB

PATIENT
  Sex: Female
  Weight: 50 kg

DRUGS (12)
  1. PROGOGUE D [Concomitant]
     Dosage: 150 MG
     Route: 048
     Dates: start: 20120302
  2. MAGNESIUM OXIDE [Concomitant]
     Dosage: 1.5 G
     Route: 048
     Dates: start: 20120312
  3. TRICHLORMETHIAZIDE [Suspect]
     Dosage: 1 MG
     Route: 048
     Dates: start: 20120302, end: 20120418
  4. NEXIUM [Concomitant]
     Dosage: 20 MG
     Route: 048
     Dates: start: 20120302
  5. DEPAS [Concomitant]
     Dosage: 0.5 MG
     Route: 048
     Dates: start: 20120402
  6. PRADAXA [Suspect]
     Indication: ATRIAL FIBRILLATION
     Dosage: 220 MG
     Route: 048
     Dates: start: 20120330, end: 20120418
  7. ROZEREM [Concomitant]
     Dosage: 8 MG
     Route: 048
     Dates: start: 20120328, end: 20120418
  8. RIVASTACH [Concomitant]
     Dosage: 45 MG
     Route: 048
     Dates: start: 20120328
  9. NORVASC [Concomitant]
     Dosage: 5 MG
     Route: 048
     Dates: start: 20120302, end: 20120418
  10. TORSEMIDE [Suspect]
     Dosage: 4 MG
     Route: 048
     Dates: start: 20120329, end: 20120418
  11. ETODOLAC [Suspect]
     Dosage: 400 MG
     Route: 048
     Dates: start: 20120307, end: 20120418
  12. LASIX [Suspect]
     Dosage: 4 MG
     Route: 048
     Dates: start: 20120302, end: 20120418

REACTIONS (6)
  - RECTAL ULCER [None]
  - INTERNATIONAL NORMALISED RATIO INCREASED [None]
  - MELAENA [None]
  - RECTAL HAEMORRHAGE [None]
  - ACTIVATED PARTIAL THROMBOPLASTIN TIME PROLONGED [None]
  - BLOOD CREATININE INCREASED [None]
